FAERS Safety Report 6018437-6 (Version None)
Quarter: 2008Q4

REPORT INFORMATION
  Report Type: 
  Country: None (occurrence: None)
  Receive Date: 20081223
  Receipt Date: 20081202
  Transmission Date: 20090506
  Serious: Yes (Hospitalization)
  Sender: FDA-Public Use
  Company Number: DE-PFIZER INC-2008101344

PATIENT

DRUGS (2)
  1. LYRICA [Suspect]
     Dosage: 150 MG, 2X/DAY
  2. DRUG, UNSPECIFIED [Concomitant]

REACTIONS (2)
  - HYPOKALAEMIA [None]
  - RENAL IMPAIRMENT [None]
